FAERS Safety Report 15361916 (Version 1)
Quarter: 2018Q3

REPORT INFORMATION
  Report Type: Spontaneous
  Country: FI (occurrence: FI)
  Receive Date: 20180907
  Receipt Date: 20180907
  Transmission Date: 20181010
  Serious: Yes (Other)
  Sender: FDA-Public Use
  Company Number: FI-ELI_LILLY_AND_COMPANY-FI201808014460

PATIENT
  Sex: Female

DRUGS (4)
  1. HUMALOG JUNIOR KWIKPEN [Suspect]
     Active Substance: INSULIN LISPRO
     Indication: PRODUCT USED FOR UNKNOWN INDICATION
     Dosage: 2?3 IU, UNKNOWN (PER MEAL)
     Route: 065
  2. HUMALOG [Suspect]
     Active Substance: INSULIN LISPRO
     Dosage: 2?3 IU, UNKNOWN (PER MEAL)
     Route: 065
  3. TOUJEO [Concomitant]
     Active Substance: INSULIN GLARGINE
     Indication: PRODUCT USED FOR UNKNOWN INDICATION
  4. HUMALOG [Suspect]
     Active Substance: INSULIN LISPRO
     Indication: PRODUCT USED FOR UNKNOWN INDICATION
     Dosage: 2?3 IU, UNKNOWN (PER MEAL)
     Route: 065
     Dates: start: 1998

REACTIONS (9)
  - Blood glucose decreased [Unknown]
  - Cardiac disorder [Unknown]
  - Renal failure [Unknown]
  - Protein urine present [Unknown]
  - Blood glucose increased [Unknown]
  - Visual impairment [Unknown]
  - Blood pressure abnormal [Unknown]
  - Thyroid function test abnormal [Unknown]
  - Blood creatinine increased [Unknown]
